FAERS Safety Report 12407535 (Version 1)
Quarter: 2016Q2

REPORT INFORMATION
  Report Type: Spontaneous
  Country: DE (occurrence: DE)
  Receive Date: 20160526
  Receipt Date: 20160526
  Transmission Date: 20160815
  Serious: Yes (Other)
  Sender: FDA-Public Use
  Company Number: PHHY2016DE070876

PATIENT
  Age: 84 Year
  Sex: Female

DRUGS (2)
  1. DAFIRO HCT [Suspect]
     Active Substance: AMLODIPINE\HYDROCHLOROTHIAZIDE\VALSARTAN
     Indication: PRODUCT USED FOR UNKNOWN INDICATION
     Dosage: 1 DF, BID (AMLODIPINE 5MG + VALSARTAN 160MG + HCT 12.5MG)
     Route: 065
  2. DAFIRO HCT [Suspect]
     Active Substance: AMLODIPINE\HYDROCHLOROTHIAZIDE\VALSARTAN
     Dosage: 1 DF, QD (AMLODIPINE 10MG + VALSARTAN 320MG + HCT 25MG)
     Route: 065
     Dates: start: 20160518

REACTIONS (5)
  - Blood pressure increased [Unknown]
  - Wrong technique in product usage process [Unknown]
  - Malaise [Unknown]
  - Insomnia [Unknown]
  - Palpitations [Unknown]

NARRATIVE: CASE EVENT DATE: 201605
